FAERS Safety Report 7215426-0 (Version None)
Quarter: 2011Q1

REPORT INFORMATION
  Report Type: 
  Country: None (occurrence: None)
  Receive Date: 20110107
  Receipt Date: 20110105
  Transmission Date: 20110831
  Serious: Yes (Hospitalization)
  Sender: FDA-Public Use
  Company Number: A0903600A

PATIENT
  Age: 58 Year
  Sex: Female

DRUGS (1)
  1. ALLI [Suspect]
     Indication: WEIGHT LOSS DIET
     Route: 065
     Dates: start: 20100101

REACTIONS (4)
  - MALAISE [None]
  - GASTROINTESTINAL DISORDER [None]
  - DIARRHOEA [None]
  - VOMITING [None]
